FAERS Safety Report 4579645-4 (Version None)
Quarter: 2005Q1

REPORT INFORMATION
  Report Type: 
  Country: None (occurrence: None)
  Receive Date: 20050210
  Receipt Date: 20050125
  Transmission Date: 20050727
  Serious: Yes (Death, Hospitalization)
  Sender: FDA-Public Use
  Company Number: 10077

PATIENT
  Age: 49 Year
  Sex: Male

DRUGS (4)
  1. METHOTREXATE [Suspect]
     Indication: POLYARTHRITIS
     Dosage: 4 MG WEEKLY
     Dates: start: 20030701, end: 20030101
  2. LEFLUNOMIDE [Suspect]
     Indication: POLYARTHRITIS
     Dosage: 100 MG TID/20 MG
     Dates: start: 20030922, end: 20030924
  3. LEFLUNOMIDE [Suspect]
     Indication: POLYARTHRITIS
     Dosage: 100 MG TID/20 MG
     Dates: start: 20030925
  4. PREDNISOLONE [Concomitant]

REACTIONS (12)
  - CONDITION AGGRAVATED [None]
  - DERMATITIS EXFOLIATIVE [None]
  - DIARRHOEA [None]
  - HEPATOCELLULAR DAMAGE [None]
  - INTERSTITIAL LUNG DISEASE [None]
  - NAUSEA [None]
  - PNEUMOCYSTIS JIROVECI PNEUMONIA [None]
  - PO2 DECREASED [None]
  - POLYARTHRITIS [None]
  - RASH [None]
  - RESPIRATORY FAILURE [None]
  - RESPIRATORY GAS EXCHANGE DISORDER [None]
